FAERS Safety Report 9034878 (Version 1)
Quarter: 2013Q1

REPORT INFORMATION
  Report Type: Spontaneous
  Country: DK (occurrence: None)
  Receive Date: 20130116
  Receipt Date: 20130116
  Transmission Date: 20140127
  Serious: Yes (Disabling, Other)
  Sender: FDA-Public Use
  Company Number: 2013MA000163

PATIENT
  Sex: Male

DRUGS (1)
  1. CITALOPRAM HYDROBROMIDE TABLETS, 10 MG (PUREPAC) (CITALOPRAM HYDROBROMIDE) [Suspect]
     Indication: DEPRESSION
     Route: 048
     Dates: start: 20101224, end: 20110707

REACTIONS (16)
  - Drug withdrawal syndrome [None]
  - Hypoaesthesia [None]
  - Erectile dysfunction [None]
  - Anorgasmia [None]
  - Pyrexia [None]
  - Influenza like illness [None]
  - Migraine [None]
  - Anger [None]
  - Depressed mood [None]
  - Paraesthesia [None]
  - Initial insomnia [None]
  - Feeling abnormal [None]
  - Impaired work ability [None]
  - Feeling abnormal [None]
  - Personality change [None]
  - Libido decreased [None]
